FAERS Safety Report 6977222-9 (Version None)
Quarter: 2010Q3

REPORT INFORMATION
  Report Type: 
  Country: None (occurrence: None)
  Receive Date: 20100910
  Receipt Date: 20100902
  Transmission Date: 20110219
  Serious: Yes (Hospitalization)
  Sender: FDA-Public Use
  Company Number: US-TEVA-243925USA

PATIENT
  Sex: Female

DRUGS (6)
  1. CLOZAPINE [Suspect]
     Indication: SCHIZOPHRENIA
     Route: 048
  2. LAMOTRIGINE [Concomitant]
  3. LORAZEPAM [Concomitant]
  4. VALPROATE SEMISODIUM [Concomitant]
  5. VENLAFAXINE HYDROCHLORIDE [Concomitant]
  6. GABAPENTIN [Concomitant]
     Indication: MOVEMENT DISORDER

REACTIONS (2)
  - FALL [None]
  - SUBDURAL HAEMATOMA [None]
